FAERS Safety Report 10685274 (Version 2)
Quarter: 2015Q1

REPORT INFORMATION
  Report Type: Report from Study
  Country: BR (occurrence: BR)
  Receive Date: 20141231
  Receipt Date: 20150206
  Transmission Date: 20150720
  Serious: Yes (Other)
  Sender: FDA-Public Use
  Company Number: PHHY2014BR170175

PATIENT
  Sex: Female
  Weight: 70 kg

DRUGS (2)
  1. FORASEQ [Suspect]
     Active Substance: BUDESONIDE\FORMOTEROL FUMARATE
     Indication: CHRONIC OBSTRUCTIVE PULMONARY DISEASE
  2. FORASEQ [Suspect]
     Active Substance: BUDESONIDE\FORMOTEROL FUMARATE
     Indication: EMPHYSEMA
     Dosage: 1 DF, BID (IN THE MORNING AND AT NIGHT)
     Route: 065

REACTIONS (3)
  - Productive cough [Recovering/Resolving]
  - Feeling abnormal [Recovering/Resolving]
  - Drug dependence [Recovering/Resolving]
